FAERS Safety Report 11022669 (Version 2)
Quarter: 2015Q2

REPORT INFORMATION
  Report Type: Spontaneous
  Country: US (occurrence: US)
  Receive Date: 20150413
  Receipt Date: 20150617
  Transmission Date: 20150821
  Serious: Yes (Hospitalization, Other)
  Sender: FDA-Public Use
  Company Number: US-ELI_LILLY_AND_COMPANY-US201504001382

PATIENT
  Age: 51 Year
  Sex: Male

DRUGS (14)
  1. ANDROGEL [Suspect]
     Active Substance: TESTOSTERONE
     Indication: BLOOD TESTOSTERONE DECREASED
     Dosage: UNK, UNKNOWN
     Route: 065
     Dates: start: 200601, end: 201212
  2. LUNESTA [Concomitant]
     Active Substance: ESZOPICLONE
  3. BYETTA [Concomitant]
     Active Substance: EXENATIDE
  4. LEVEMIR [Concomitant]
     Active Substance: INSULIN DETEMIR
  5. VIMOVO [Concomitant]
     Active Substance: ESOMEPRAZOLE MAGNESIUM\NAPROXEN
  6. DIOVAN [Concomitant]
     Active Substance: VALSARTAN
  7. AXIRON [Suspect]
     Active Substance: TESTOSTERONE
     Indication: BLOOD TESTOSTERONE DECREASED
     Dosage: UNK, UNKNOWN
     Route: 065
     Dates: start: 200601, end: 201212
  8. ULORIC [Concomitant]
     Active Substance: FEBUXOSTAT
  9. WELLBUTRIN [Concomitant]
     Active Substance: BUPROPION HYDROCHLORIDE
  10. JANUMET [Concomitant]
     Active Substance: METFORMIN HYDROCHLORIDE\SITAGLIPTIN PHOSPHATE
  11. VICODIN [Concomitant]
     Active Substance: ACETAMINOPHEN\HYDROCODONE BITARTRATE
  12. LYRICA [Concomitant]
     Active Substance: PREGABALIN
  13. AMLODIPINE [Concomitant]
     Active Substance: AMLODIPINE BESYLATE
  14. XANAX [Concomitant]
     Active Substance: ALPRAZOLAM

REACTIONS (3)
  - Cardiac failure congestive [Unknown]
  - Myocardial infarction [Unknown]
  - Myocardial infarction [Unknown]

NARRATIVE: CASE EVENT DATE: 20121105
